FAERS Safety Report 6739880-3 (Version None)
Quarter: 2010Q2

REPORT INFORMATION
  Report Type: 
  Country: None (occurrence: None)
  Receive Date: 20100525
  Receipt Date: 20100518
  Transmission Date: 20101027
  Serious: Yes (Other)
  Sender: FDA-Public Use
  Company Number: US-PFIZER INC-2010062687

PATIENT
  Sex: Female
  Weight: 49.887 kg

DRUGS (1)
  1. ZOLOFT [Suspect]
     Indication: IRRITABILITY
     Dosage: 100 MG, UNK
     Route: 048

REACTIONS (4)
  - PRURITUS [None]
  - RASH [None]
  - REFLUX OESOPHAGITIS [None]
  - WHEEZING [None]
